FAERS Safety Report 23234238 (Version 1)
Quarter: 2023Q4

REPORT INFORMATION
  Report Type: Spontaneous
  Country: SE (occurrence: SE)
  Receive Date: 20231128
  Receipt Date: 20231128
  Transmission Date: 20240110
  Serious: Yes (Hospitalization)
  Sender: FDA-Public Use
  Company Number: SE-002147023-NVSC2023SE251290

PATIENT

DRUGS (12)
  1. RUXOLITINIB [Suspect]
     Active Substance: RUXOLITINIB
     Indication: Haemophagocytic lymphohistiocytosis
     Dosage: 15 MG/M2, BID
     Route: 065
  2. RUXOLITINIB [Suspect]
     Active Substance: RUXOLITINIB
     Indication: Still^s disease
  3. CYCLOSPORINE [Suspect]
     Active Substance: CYCLOSPORINE
     Indication: Product used for unknown indication
     Dosage: UNK (DURING WINTER 2022/2023)
     Route: 065
  4. TACROLIMUS [Suspect]
     Active Substance: TACROLIMUS
     Indication: Product used for unknown indication
     Dosage: UNK
     Route: 065
  5. ANAKINRA [Concomitant]
     Active Substance: ANAKINRA
     Indication: Product used for unknown indication
     Dosage: 5 MG/KG (GOOD RESPONSE TO HIGH IV DOSAGE. SUB-Q ADMINISTRATION DID NOT WORK)
     Route: 065
  6. ANAKINRA [Concomitant]
     Active Substance: ANAKINRA
     Dosage: 10 MG/KG
     Route: 065
  7. TOCILIZUMAB [Concomitant]
     Active Substance: TOCILIZUMAB
     Indication: Product used for unknown indication
     Dosage: UNK (COMBINED WITH STEROIDS)
     Route: 065
  8. PREDNISOLONE [Concomitant]
     Active Substance: PREDNISOLONE
     Indication: Product used for unknown indication
     Dosage: 5 MG, QD (DAY) (LOW DOSAGE)
     Route: 065
  9. ETOPOSIDE [Concomitant]
     Active Substance: ETOPOSIDE
     Indication: Product used for unknown indication
     Dosage: 75 MG/M2 (START DATE- 3RD OF NOVEMBER)
     Route: 065
  10. ETOPOSIDE [Concomitant]
     Active Substance: ETOPOSIDE
     Dosage: 100 MG/M2 (10TH OF NOVEMBER)
     Route: 065
  11. RAPAMUNE [Concomitant]
     Active Substance: SIROLIMUS
     Indication: Product used for unknown indication
     Dosage: UNK (START DATE- 15TH OF NOVEMBER) (AIMING AT KONC 5- 7)
     Route: 065
  12. ORENCIA [Concomitant]
     Active Substance: ABATACEPT
     Indication: Product used for unknown indication
     Dosage: UNK, QD (X1)
     Route: 065

REACTIONS (18)
  - Pain [Unknown]
  - Fear of injection [Unknown]
  - Anaemia [Unknown]
  - Hair growth abnormal [Unknown]
  - Lymphadenopathy [Unknown]
  - Rash [Unknown]
  - Fatigue [Unknown]
  - Serum ferritin increased [Unknown]
  - Pyrexia [Unknown]
  - Influenza [Unknown]
  - Drug ineffective [Unknown]
  - Off label use [Unknown]
  - Platelet count decreased [Unknown]
  - White blood cell count decreased [Unknown]
  - Rash pruritic [Unknown]
  - Myalgia [Unknown]
  - Posterior reversible encephalopathy syndrome [Unknown]
  - Juvenile idiopathic arthritis [Unknown]

NARRATIVE: CASE EVENT DATE: 20230401
